FAERS Safety Report 9846916 (Version 1)
Quarter: 2013Q4

REPORT INFORMATION
  Report Type: Spontaneous
  Country: US (occurrence: None)
  Receive Date: 20131219
  Receipt Date: 20131219
  Transmission Date: 20140711
  Serious: Yes (Other)
  Sender: FDA-Public Use
  Company Number: 163-20785-13044117

PATIENT
  Age: 61 Year
  Sex: Male

DRUGS (1)
  1. THALOMID (THALIDOMIDE) (100 MILLIGRAM, CAPSULES) [Suspect]
     Indication: LEPROMATOUS LEPROSY
     Dosage: 100 MG , 28 IN 28 D, PO
     Route: 048
     Dates: start: 201303

REACTIONS (5)
  - Tinnitus [None]
  - Hypoaesthesia [None]
  - Dizziness [None]
  - Dry mouth [None]
  - Adverse drug reaction [None]
